FAERS Safety Report 11785088 (Version 1)
Quarter: 2015Q4

REPORT INFORMATION
  Report Type: Spontaneous
  Country: US (occurrence: None)
  Receive Date: 20151125
  Receipt Date: 20151125
  Transmission Date: 20160305
  Serious: Yes (Life-Threatening, Disabling, Other)
  Sender: FDA-Public Use
  Company Number: None

PATIENT
  Age: 33 Year
  Sex: Female
  Weight: 36.15 kg

DRUGS (7)
  1. SOMA [Concomitant]
     Active Substance: CARISOPRODOL
  2. ZYPREXA [Suspect]
     Active Substance: OLANZAPINE
     Indication: BIPOLAR DISORDER
     Dosage: TAKEN BY MOUTH
     Route: 048
  3. VITAMIN B12 [Concomitant]
     Active Substance: CYANOCOBALAMIN
  4. LORZONE [Concomitant]
     Active Substance: CHLORZOXAZONE
  5. NEXPLANON [Concomitant]
     Active Substance: ETONOGESTREL
  6. XANEX [Concomitant]
  7. MELATONIN [Concomitant]
     Active Substance: MELATONIN

REACTIONS (13)
  - Blepharospasm [None]
  - Torticollis [None]
  - Attention deficit/hyperactivity disorder [None]
  - Obsessive-compulsive disorder [None]
  - Weight decreased [None]
  - Dystonia [None]
  - Insomnia [None]
  - Post-traumatic stress disorder [None]
  - Muscle atrophy [None]
  - Tardive dyskinesia [None]
  - Oromandibular dystonia [None]
  - Anxiety [None]
  - Bipolar disorder [None]

NARRATIVE: CASE EVENT DATE: 20140105
